FAERS Safety Report 21825525 (Version 1)
Quarter: 2023Q1

REPORT INFORMATION
  Report Type: Report from Study
  Country: US (occurrence: US)
  Receive Date: 20230105
  Receipt Date: 20230105
  Transmission Date: 20230417
  Serious: Yes (Other)
  Sender: FDA-Public Use
  Company Number: US-SEATTLE GENETICS-2022SGN12027

PATIENT
  Sex: Female

DRUGS (4)
  1. TUCATINIB [Suspect]
     Active Substance: TUCATINIB
     Indication: Breast cancer female
     Dosage: UNK
     Route: 065
  2. TUCATINIB [Suspect]
     Active Substance: TUCATINIB
     Dosage: UNK
     Route: 065
  3. CAPECITABINE [Suspect]
     Active Substance: CAPECITABINE
     Indication: Breast cancer female
     Route: 065
  4. TRASTUZUMAB [Suspect]
     Active Substance: TRASTUZUMAB
     Indication: Breast cancer female
     Route: 065

REACTIONS (10)
  - Oropharyngeal blistering [Unknown]
  - Skin ulcer [Unknown]
  - Blister [Unknown]
  - Blister rupture [Unknown]
  - Blister infected [Unknown]
  - Oral mucosal blistering [Unknown]
  - Gait inability [Unknown]
  - Blood bilirubin abnormal [Unknown]
  - Bronchitis [Unknown]
  - Diarrhoea [Unknown]
